FAERS Safety Report 13767504 (Version 1)
Quarter: 2017Q3

REPORT INFORMATION
  Report Type: Spontaneous
  Country: CH (occurrence: CH)
  Receive Date: 20170719
  Receipt Date: 20170719
  Transmission Date: 20171127
  Serious: Yes (Hospitalization)
  Sender: FDA-Public Use
  Company Number: CH-ASTRAZENECA-2017SE71640

PATIENT
  Age: 32041 Day
  Sex: Female

DRUGS (8)
  1. DISTRANEURIN KAPSELN [Suspect]
     Active Substance: CLOMETHIAZOLE
     Route: 048
     Dates: start: 201705, end: 201706
  2. COVERSUM N COMBI [Concomitant]
     Route: 048
  3. ATORVASTATIN [Concomitant]
     Active Substance: ATORVASTATIN
     Route: 048
  4. PANTOZOL [Concomitant]
     Active Substance: PANTOPRAZOLE SODIUM
     Route: 048
  5. TEMESTA [Suspect]
     Active Substance: LORAZEPAM
     Dosage: 1MG. THERAPY PRESCRIBED AS A RESERVE, THE PATIENT HAD TAKEN TWO TABLETS ON THE DAY SHE WAS ADMITT...
     Route: 048
     Dates: start: 201705, end: 201706
  6. ELIQUIS [Concomitant]
     Active Substance: APIXABAN
     Route: 048
  7. SEQUASE [Suspect]
     Active Substance: QUETIAPINE FUMARATE
     Dosage: 25.0MG UNKNOWN
     Route: 048
     Dates: start: 201705, end: 201706
  8. SOTALOL MEPHA 80 TABLETTEN [Concomitant]
     Active Substance: SOTALOL HYDROCHLORIDE
     Route: 048

REACTIONS (3)
  - Craniocerebral injury [Recovered/Resolved]
  - Somnolence [Recovered/Resolved]
  - Fall [Recovered/Resolved]

NARRATIVE: CASE EVENT DATE: 20170610
